FAERS Safety Report 14657685 (Version 1)
Quarter: 2018Q1

REPORT INFORMATION
  Report Type: Spontaneous
  Country: US (occurrence: US)
  Receive Date: 20180320
  Receipt Date: 20180320
  Transmission Date: 20180509
  Serious: No
  Sender: FDA-Public Use
  Company Number: US-ASTRAZENECA-2018SE08754

PATIENT
  Age: 473 Day
  Sex: Female
  Weight: 8.7 kg

DRUGS (1)
  1. SYNAGIS [Suspect]
     Active Substance: PALIVIZUMAB
     Indication: RESPIRATORY SYNCYTIAL VIRUS INFECTION
     Dosage: 15 MG PER KILOGRAM ON 17-NOV-2017, 20-DEC-2017, 18-JAN-2018
     Route: 030

REACTIONS (3)
  - Viral upper respiratory tract infection [Not Recovered/Not Resolved]
  - Urinary tract infection viral [Unknown]
  - Pyrexia [Recovered/Resolved]

NARRATIVE: CASE EVENT DATE: 20180117
